FAERS Safety Report 20565959 (Version 3)
Quarter: 2022Q2

REPORT INFORMATION
  Report Type: Spontaneous
  Country: JP (occurrence: JP)
  Receive Date: 20220308
  Receipt Date: 20220419
  Transmission Date: 20220721
  Serious: Yes (Death)
  Sender: FDA-Public Use
  Company Number: JP-TAIHO-TT220043_P_1

PATIENT
  Age: 61 Year
  Sex: Male
  Weight: 42 kg

DRUGS (9)
  1. LONSURF [Suspect]
     Active Substance: TIPIRACIL HYDROCHLORIDE\TRIFLURIDINE
     Indication: Rectal cancer metastatic
     Dosage: ON DAYS 1-5 AND 8-12, 9.5 DOSING DAYS
     Route: 048
     Dates: start: 20220110, end: 20220121
  2. AVASTIN [Suspect]
     Active Substance: BEVACIZUMAB
     Indication: Rectal cancer metastatic
     Dosage: DETAILS NOT REPORTED
     Route: 041
     Dates: start: 20220110
  3. BIO-THREE OD [Concomitant]
     Route: 048
     Dates: start: 20200107
  4. LOPERAMIDE [Concomitant]
     Active Substance: LOPERAMIDE
     Route: 048
     Dates: start: 20200117, end: 20220121
  5. HERBALS [Concomitant]
     Active Substance: HERBALS
     Route: 048
     Dates: start: 20200331, end: 20220121
  6. LOXOPROFEN [Concomitant]
     Active Substance: LOXOPROFEN
     Route: 048
     Dates: start: 20200529, end: 20220121
  7. LYRICA [Concomitant]
     Active Substance: PREGABALIN
     Route: 048
     Dates: start: 20200710, end: 20220121
  8. DIMETHICONE [Concomitant]
     Active Substance: DIMETHICONE
     Route: 048
     Dates: start: 20201106, end: 20220121
  9. FUROSEMIDE [Concomitant]
     Active Substance: FUROSEMIDE
     Route: 048
     Dates: start: 20211210

REACTIONS (1)
  - Febrile neutropenia [Fatal]

NARRATIVE: CASE EVENT DATE: 20220125
